FAERS Safety Report 5384687-5 (Version None)
Quarter: 2007Q3

REPORT INFORMATION
  Report Type: 
  Country: None (occurrence: None)
  Receive Date: 20070710
  Receipt Date: 20070507
  Transmission Date: 20080115
  Serious: Yes (Hospitalization)
  Sender: FDA-Public Use
  Company Number: 2007-01321

PATIENT
  Age: 78 Year
  Sex: Male
  Weight: 80.7 kg

DRUGS (16)
  1. VELCADE [Suspect]
     Indication: LEUKAEMIA PLASMACYTIC
     Dosage: 2.50 MG, INTRAVENOUS
     Route: 042
     Dates: start: 20070403, end: 20070427
  2. DECADRON [Suspect]
     Indication: LEUKAEMIA PLASMACYTIC
     Dosage: 30.00 MG, INTRAVENOUS
     Route: 042
     Dates: start: 20070403
  3. COUMADIN [Concomitant]
  4. ZYLOPRAM (ALLOPURINOL) [Concomitant]
  5. NORVASC [Concomitant]
  6. PULMICORT [Concomitant]
  7. SYNTHROID [Concomitant]
  8. SINGULAIR [Concomitant]
  9. ZOCOR [Concomitant]
  10. ATROVENT [Concomitant]
  11. NEURONTIN [Concomitant]
  12. VICODIN [Concomitant]
  13. AMARYL [Concomitant]
  14. ROBITUSSIN AC (GUAIFENESIN) [Concomitant]
  15. MIRALAX [Concomitant]
  16. IMMUNOGLOBULINS (IMMUNOGLOBULINS) [Concomitant]

REACTIONS (1)
  - ILEUS [None]
